FAERS Safety Report 6465690-0 (Version None)
Quarter: 2009Q4

REPORT INFORMATION
  Report Type: 
  Country: None (occurrence: None)
  Receive Date: 20091201
  Receipt Date: 20081105
  Transmission Date: 20100525
  Serious: No
  Sender: FDA-Public Use
  Company Number: US-AMGEN-KDL317665

PATIENT
  Sex: Female

DRUGS (2)
  1. ENBREL [Suspect]
     Indication: RHEUMATOID ARTHRITIS
     Route: 058
     Dates: start: 20080924
  2. PLAQUENIL [Concomitant]
     Route: 048

REACTIONS (5)
  - FUNGAL INFECTION [None]
  - IMMUNE SYSTEM DISORDER [None]
  - INJECTION SITE HAEMATOMA [None]
  - NASOPHARYNGITIS [None]
  - RHINORRHOEA [None]
